FAERS Safety Report 16625536 (Version 3)
Quarter: 2019Q3

REPORT INFORMATION
  Report Type: Spontaneous
  Country: US (occurrence: US)
  Receive Date: 20190724
  Receipt Date: 20190829
  Transmission Date: 20191004
  Serious: No
  Sender: FDA-Public Use
  Company Number: US-PFIZER INC-2019312948

PATIENT
  Age: 67 Year
  Sex: Male
  Weight: 135.62 kg

DRUGS (1)
  1. GABAPENTIN. [Suspect]
     Active Substance: GABAPENTIN
     Indication: NEUROPATHY PERIPHERAL
     Dosage: 300 MG, UNK
     Route: 048
     Dates: start: 20190527, end: 20190619

REACTIONS (3)
  - Drug ineffective for unapproved indication [Unknown]
  - Fatigue [Unknown]
  - Off label use [Unknown]
